FAERS Safety Report 13368276 (Version 1)
Quarter: 2017Q1

REPORT INFORMATION
  Report Type: Spontaneous
  Country: GB (occurrence: GB)
  Receive Date: 20170324
  Receipt Date: 20170324
  Transmission Date: 20170429
  Serious: Yes (Other)
  Sender: FDA-Public Use
  Company Number: GB-SUN PHARMACEUTICAL INDUSTRIES LTD-2017RR-136425

PATIENT
  Age: 46 Year
  Sex: Female
  Weight: 91 kg

DRUGS (5)
  1. TAMOXIFEN [Interacting]
     Active Substance: TAMOXIFEN
     Indication: BREAST CANCER
     Dosage: 20 MG, UNK
     Route: 048
     Dates: start: 20081208
  2. PERINDOPRIL ERBUMINE. [Concomitant]
     Active Substance: PERINDOPRIL ERBUMINE
     Indication: HYPERTENSION
     Dosage: 8 MG, UNK
     Route: 048
     Dates: start: 20150804
  3. FLUOXETINE [Suspect]
     Active Substance: FLUOXETINE HYDROCHLORIDE
     Indication: DEPRESSION
     Dosage: 40 MG, UNK
     Route: 048
     Dates: start: 20140522, end: 20161114
  4. AMLODIPINE [Concomitant]
     Active Substance: AMLODIPINE BESYLATE
     Indication: HYPERTENSION
     Dosage: 5 MG, UNK
     Route: 048
     Dates: start: 20151022
  5. INDAPAMIDE HEMIHYDRATE [Concomitant]
     Active Substance: INDAPAMIDE HEMIHYDRATE
     Indication: HYPERTENSION
     Dosage: 2.5 MG, UNK
     Route: 048
     Dates: start: 20170221

REACTIONS (1)
  - Drug interaction [Unknown]
